FAERS Safety Report 6628428-X (Version None)
Quarter: 2010Q1

REPORT INFORMATION
  Report Type: 
  Country: None (occurrence: None)
  Receive Date: 20100311
  Receipt Date: 20100226
  Transmission Date: 20100710
  Serious: Yes (Other)
  Sender: FDA-Public Use
  Company Number: GB-PFIZER INC-2010024951

PATIENT
  Age: 70 Year
  Sex: Male
  Weight: 108 kg

DRUGS (5)
  1. CABASER [Suspect]
     Indication: MUSCLE SPASMS
     Dosage: 1 MG, UNK
     Route: 048
     Dates: start: 20100201, end: 20100201
  2. CABASER [Suspect]
     Indication: RESTLESS LEGS SYNDROME
  3. ATENOLOL [Concomitant]
     Indication: HYPERTENSION
     Dosage: 50 MG, UNK
     Route: 048
  4. BENDROFLUMETHIAZIDE [Concomitant]
     Indication: HYPERTENSION
     Dosage: 2.5 MG, UNK
     Route: 048
  5. SIMVASTATIN [Concomitant]
     Indication: BLOOD CHOLESTEROL INCREASED
     Dosage: 300 MG, UNK
     Route: 048
     Dates: start: 20090601, end: 20100101

REACTIONS (1)
  - ERECTILE DYSFUNCTION [None]
